FAERS Safety Report 12015347 (Version 1)
Quarter: 2016Q1

REPORT INFORMATION
  Report Type: Spontaneous
  Country: US (occurrence: US)
  Receive Date: 20160205
  Receipt Date: 20160205
  Transmission Date: 20160526
  Serious: No
  Sender: FDA-Public Use
  Company Number: US-AMGEN-USASP2015033406

PATIENT

DRUGS (7)
  1. CYTOXAN [Concomitant]
     Active Substance: CYCLOPHOSPHAMIDE
     Indication: LOBULAR BREAST CARCINOMA IN SITU
     Dosage: UNK
     Dates: start: 20140922
  2. ADRIAMYCIN [Concomitant]
     Active Substance: DOXORUBICIN HYDROCHLORIDE
     Indication: INVASIVE LOBULAR BREAST CARCINOMA
  3. TAXOL [Concomitant]
     Active Substance: PACLITAXEL
     Indication: LOBULAR BREAST CARCINOMA IN SITU
     Dosage: UNK
     Dates: start: 20140922
  4. ADRIAMYCIN [Concomitant]
     Active Substance: DOXORUBICIN HYDROCHLORIDE
     Indication: LOBULAR BREAST CARCINOMA IN SITU
     Dosage: UNK
     Dates: start: 20140922
  5. CYTOXAN [Concomitant]
     Active Substance: CYCLOPHOSPHAMIDE
     Indication: INVASIVE LOBULAR BREAST CARCINOMA
  6. TAXOL [Concomitant]
     Active Substance: PACLITAXEL
     Indication: INVASIVE LOBULAR BREAST CARCINOMA
  7. NEULASTA [Suspect]
     Active Substance: PEGFILGRASTIM
     Indication: PRODUCT USED FOR UNKNOWN INDICATION
     Dosage: UNK
     Route: 065

REACTIONS (5)
  - Sleep disorder [Unknown]
  - Feeling abnormal [Unknown]
  - Pain [Unknown]
  - Nausea [Unknown]
  - Dyspepsia [Not Recovered/Not Resolved]
